FAERS Safety Report 13393998 (Version 1)
Quarter: 2017Q1

REPORT INFORMATION
  Report Type: Spontaneous
  Country: US (occurrence: US)
  Receive Date: 20170331
  Receipt Date: 20170331
  Transmission Date: 20170429
  Serious: No
  Sender: FDA-Public Use
  Company Number: US-009507513-1703USA012663

PATIENT

DRUGS (1)
  1. BELSOMRA [Suspect]
     Active Substance: SUVOREXANT
     Indication: INSOMNIA
     Dosage: THE PATIENT TOOK SUVOREXANT (BELSOMRA) FOR A COUPLE DAYS (DATES UNSPECIFIED)
     Route: 048

REACTIONS (2)
  - Adverse event [Recovered/Resolved]
  - Erythema [Recovered/Resolved]
